FAERS Safety Report 8264179-6 (Version None)
Quarter: 2012Q2

REPORT INFORMATION
  Report Type: 
  Country: None (occurrence: None)
  Receive Date: 20120403
  Receipt Date: 20120320
  Transmission Date: 20120825
  Serious: Yes (Other)
  Sender: FDA-Public Use
  Company Number: 2012SA019547

PATIENT
  Age: 47 Year
  Sex: Male

DRUGS (1)
  1. MENTHOL / UNKNOWN / UNKNOWN [Suspect]
     Indication: SPINAL DISORDER

REACTIONS (2)
  - BLISTER [None]
  - THERMAL BURN [None]
